FAERS Safety Report 8321874-8 (Version None)
Quarter: 2012Q2

REPORT INFORMATION
  Report Type: 
  Country: None (occurrence: None)
  Receive Date: 20120430
  Receipt Date: 20120418
  Transmission Date: 20120825
  Serious: Yes (Hospitalization)
  Sender: FDA-Public Use
  Company Number: FR-GLAXOSMITHKLINE-B0798096A

PATIENT
  Sex: Female
  Weight: 62 kg

DRUGS (1)
  1. VOTRIENT [Suspect]
     Indication: GASTROINTESTINAL STROMAL TUMOUR
     Dosage: 800MG PER DAY
     Route: 048
     Dates: start: 20111117

REACTIONS (3)
  - MUCOSAL INFLAMMATION [None]
  - PAIN [None]
  - ANAEMIA [None]
